FAERS Safety Report 6558220-6 (Version None)
Quarter: 2010Q1

REPORT INFORMATION
  Report Type: 
  Country: None (occurrence: None)
  Receive Date: 20100129
  Receipt Date: 20090930
  Transmission Date: 20100710
  Serious: Yes (Death)
  Sender: FDA-Public Use
  Company Number: FR-RB-021050-09

PATIENT
  Age: 30 Year
  Sex: Male

DRUGS (5)
  1. SUBUTEX [Suspect]
     Indication: POLYSUBSTANCE DEPENDENCE
     Dosage: DOSING INFORMATION UNKNOWN.
     Route: 065
  2. SERESTA [Concomitant]
     Indication: DRUG USE FOR UNKNOWN INDICATION
     Dosage: DOSING INFORMATION UNKNOWN.
     Route: 065
  3. ATARAX [Suspect]
     Indication: DRUG USE FOR UNKNOWN INDICATION
     Dosage: DOSING INFORMATION UNKNOWN.
     Route: 065
  4. ALCOHOL [Suspect]
     Indication: DRUG USE FOR UNKNOWN INDICATION
     Dosage: AMOUNT USED UNKNOWN.
     Route: 065
  5. PAROXETINE HCL [Concomitant]
     Indication: DRUG USE FOR UNKNOWN INDICATION
     Dosage: DOSING INFORMATION UNKNOWN.
     Route: 065

REACTIONS (8)
  - ASPHYXIA [None]
  - BLOOD ALCOHOL INCREASED [None]
  - DEATH [None]
  - DRUG INTERACTION [None]
  - INCORRECT DOSE ADMINISTERED [None]
  - OVERDOSE [None]
  - RESPIRATORY DEPRESSION [None]
  - SUBSTANCE ABUSE [None]
